FAERS Safety Report 11564946 (Version 1)
Quarter: 2015Q3

REPORT INFORMATION
  Report Type: Report from Study
  Country: US (occurrence: US)
  Receive Date: 20150928
  Receipt Date: 20150928
  Transmission Date: 20151125
  Serious: No
  Sender: FDA-Public Use
  Company Number: US-EXELIXIS-CABO-14004940

PATIENT
  Sex: Female
  Weight: 51.1 kg

DRUGS (7)
  1. SYNTHROID [Concomitant]
     Active Substance: LEVOTHYROXINE SODIUM
  2. COMETRIQ [Suspect]
     Active Substance: CABOZANTINIB S-MALATE
     Indication: THYROID CANCER
     Dosage: 40 MG, QD
     Route: 048
     Dates: start: 20140908, end: 201504
  3. COMETRIQ [Suspect]
     Active Substance: CABOZANTINIB S-MALATE
     Dosage: 20 MG, QOD
     Route: 048
     Dates: start: 201504
  4. VITAMIN B [Concomitant]
     Active Substance: VITAMIN B
  5. IBUPROFEN. [Concomitant]
     Active Substance: IBUPROFEN
  6. COMETRIQ [Suspect]
     Active Substance: CABOZANTINIB S-MALATE
     Dosage: 40 MG, QOD
     Route: 048
     Dates: start: 201504
  7. VALIUM [Concomitant]
     Active Substance: DIAZEPAM

REACTIONS (16)
  - Hypovitaminosis [Unknown]
  - Muscle spasms [Not Recovered/Not Resolved]
  - Pain of skin [Unknown]
  - Fear [Unknown]
  - Pain [Recovered/Resolved]
  - Calcium deficiency [Unknown]
  - Weight decreased [Recovering/Resolving]
  - Gastrooesophageal reflux disease [Unknown]
  - Dysphagia [Unknown]
  - Diarrhoea [Recovered/Resolved]
  - Malaise [Unknown]
  - Pharyngeal oedema [Recovered/Resolved]
  - Odynophagia [Unknown]
  - Oropharyngeal pain [Unknown]
  - Pharyngeal erythema [Unknown]
  - Weight increased [Unknown]
